FAERS Safety Report 20861034 (Version 2)
Quarter: 2022Q2

REPORT INFORMATION
  Report Type: Other
  Country: US (occurrence: None)
  Receive Date: 20220523
  Receipt Date: 20220525
  Transmission Date: 20220721
  Serious: No
  Sender: FDA-Public Use
  Company Number: US-ROCHE-3100660

PATIENT
  Sex: Female

DRUGS (2)
  1. XELODA [Suspect]
     Active Substance: CAPECITABINE
     Indication: Neoplasm malignant
     Dosage: TAKE 4 TABLET(S) BY MOUTH TWICE A DAY ON DAYS 1-14 EVERY 21 DAY(S) TAKE WITHIN 30 MINUTES AFTER FOOD
     Route: 048
  2. XELODA [Suspect]
     Active Substance: CAPECITABINE
     Indication: Oestrogen receptor assay positive

REACTIONS (3)
  - Poor quality sleep [Unknown]
  - Illness [Unknown]
  - Stress [Unknown]
